FAERS Safety Report 8781396 (Version 4)
Quarter: 2012Q4

REPORT INFORMATION
  Report Type: 
  Country: FR (occurrence: FR)
  Receive Date: 20120913
  Receipt Date: 20120924
  Transmission Date: 20130627
  Serious: Yes (Hospitalization, Other)
  Sender: FDA-Public Use
  Company Number: PHHY2012FR072474

PATIENT
  Age: 42 None
  Sex: Male
  Weight: 61 kg

DRUGS (3)
  1. GILENYA [Suspect]
     Indication: MULTIPLE SCLEROSIS RELAPSE
     Dosage: 0.5 mg, QD
     Route: 048
     Dates: start: 201203, end: 20120717
  2. XATRAL [Concomitant]
     Dosage: 1 DF, evening
  3. VIAGRA [Concomitant]

REACTIONS (33)
  - Anaplastic large cell lymphoma T- and null-cell types [Unknown]
  - Bone lesion [Unknown]
  - Osteolysis [Unknown]
  - Weight decreased [Unknown]
  - Lymph node pain [Unknown]
  - Otitis externa [Unknown]
  - Pyrexia [Unknown]
  - Spinal pain [Unknown]
  - Cerebral calcification [Unknown]
  - Inflammation [Unknown]
  - Muscle spasms [Unknown]
  - Ear pain [Not Recovered/Not Resolved]
  - Aspergillosis [Unknown]
  - Pollakiuria [Unknown]
  - Dysuria [Unknown]
  - Micturition urgency [Unknown]
  - Myalgia [Unknown]
  - Pain [Unknown]
  - Muscular weakness [Unknown]
  - Hyperglobulinaemia [Unknown]
  - Hypoalbuminaemia [Unknown]
  - Urine protein, quantitative [Unknown]
  - Bone pain [Unknown]
  - Areflexia [Unknown]
  - Extensor plantar response [Unknown]
  - Thrombocytosis [Unknown]
  - Blood alkaline phosphatase increased [Unknown]
  - Erythema [Unknown]
  - C-reactive protein increased [Unknown]
  - Epstein-Barr virus infection [Unknown]
  - Hyperthermia [Unknown]
  - Headache [Not Recovered/Not Resolved]
  - Malnutrition [Unknown]
